FAERS Safety Report 19573699 (Version 1)
Quarter: 2021Q3

REPORT INFORMATION
  Report Type: Report from Study
  Country: FR (occurrence: FR)
  Receive Date: 20210717
  Receipt Date: 20210717
  Transmission Date: 20211014
  Serious: Yes (Other)
  Sender: FDA-Public Use
  Company Number: FR-TAKEDA-2021TUS042601

PATIENT
  Age: 23 Year
  Sex: Male

DRUGS (8)
  1. ALPRAZOLAM. [Concomitant]
     Active Substance: ALPRAZOLAM
     Indication: ANXIETY
     Dosage: 7 MILLIGRAM, PRN
     Route: 048
     Dates: start: 20201002
  2. TEDUGLUTIDE [Suspect]
     Active Substance: TEDUGLUTIDE
     Indication: SHORT-BOWEL SYNDROME
     Dosage: 1.8 MILLIGRAM, QD
     Route: 065
     Dates: start: 20161115, end: 20201019
  3. TEDUGLUTIDE [Suspect]
     Active Substance: TEDUGLUTIDE
     Indication: SHORT-BOWEL SYNDROME
     Dosage: 1.8 MILLIGRAM, QD
     Route: 065
     Dates: start: 20161115, end: 20201019
  4. TEDUGLUTIDE [Suspect]
     Active Substance: TEDUGLUTIDE
     Indication: SHORT-BOWEL SYNDROME
     Dosage: 1.8 MILLIGRAM, QD
     Route: 065
     Dates: start: 20161115, end: 20201019
  5. TIXTAR [Concomitant]
     Active Substance: RIFAXIMIN
     Indication: PROPHYLAXIS
     Dosage: 550 MILLIGRAM, BID
     Route: 048
     Dates: start: 20200814, end: 20200824
  6. INNOHEP [Concomitant]
     Active Substance: TINZAPARIN SODIUM
     Indication: COLLATERAL CIRCULATION
     Dosage: 40 MILLILITER, QD
     Route: 058
     Dates: start: 20200615
  7. TEDUGLUTIDE [Suspect]
     Active Substance: TEDUGLUTIDE
     Indication: SHORT-BOWEL SYNDROME
     Dosage: 1.8 MILLIGRAM, QD
     Route: 065
     Dates: start: 20161115, end: 20201019
  8. TIXTAR [Concomitant]
     Active Substance: RIFAXIMIN
     Indication: GASTROINTESTINAL BACTERIAL OVERGROWTH
     Dosage: 550 MILLIGRAM, BID
     Route: 048
     Dates: start: 20201022, end: 20210122

REACTIONS (2)
  - Weight gain poor [Not Recovered/Not Resolved]
  - Erectile dysfunction [Not Recovered/Not Resolved]

NARRATIVE: CASE EVENT DATE: 201703
